FAERS Safety Report 5036405-8 (Version None)
Quarter: 2006Q2

REPORT INFORMATION
  Report Type: 
  Country: None (occurrence: None)
  Receive Date: 20060601
  Receipt Date: 20060412
  Transmission Date: 20061013
  Serious: No
  Sender: FDA-Public Use
  Company Number: US200604002269

PATIENT
  Age: 40 Year
  Sex: Female

DRUGS (2)
  1. CYMBALTA [Suspect]
     Indication: DEPRESSION
     Dosage: SEE IMAGE
     Dates: end: 20050409
  2. CYMBALTA [Suspect]
     Indication: DEPRESSION
     Dosage: SEE IMAGE
     Dates: start: 20050701

REACTIONS (6)
  - FEELING ABNORMAL [None]
  - HEART RATE IRREGULAR [None]
  - INSOMNIA [None]
  - JOB DISSATISFACTION [None]
  - NERVOUSNESS [None]
  - NIGHTMARE [None]
